FAERS Safety Report 18037485 (Version 1)
Quarter: 2020Q3

REPORT INFORMATION
  Report Type: Spontaneous
  Country: FR (occurrence: FR)
  Receive Date: 20200717
  Receipt Date: 20200717
  Transmission Date: 20201103
  Serious: Yes (Life-Threatening)
  Sender: FDA-Public Use
  Company Number: FR-TEVA-2020-FR-1800736

PATIENT
  Age: 67 Year
  Sex: Female
  Weight: 104 kg

DRUGS (6)
  1. SUFENTANIL [Concomitant]
     Active Substance: SUFENTANIL
     Dosage: 20 MG
     Route: 042
     Dates: start: 20200407
  2. MIDAZOLAM. [Concomitant]
     Active Substance: MIDAZOLAM
     Dosage: 20 MG
     Route: 042
     Dates: start: 20200407
  3. VANCOMYCIN [Suspect]
     Active Substance: VANCOMYCIN
     Indication: BRONCHOPULMONARY ASPERGILLOSIS
     Dosage: 3 GRAM
     Route: 042
     Dates: start: 20200426, end: 20200429
  4. VORICONAZOLE. [Suspect]
     Active Substance: VORICONAZOLE
     Indication: BRONCHOPULMONARY ASPERGILLOSIS
     Dosage: SEE COMMENT
     Route: 042
     Dates: start: 20200417, end: 20200429
  5. HEPARIN [Concomitant]
     Active Substance: HEPARIN SODIUM
     Dosage: 1500 IU
     Route: 042
     Dates: start: 20200410
  6. TAZOCILLINE 4 G/500 MG, POUDRE POUR SOLUTION POUR PERFUSION [Suspect]
     Active Substance: PIPERACILLIN SODIUM\TAZOBACTAM SODIUM
     Indication: BRONCHOPULMONARY ASPERGILLOSIS
     Dosage: 4 DOSAGE FORMS
     Route: 042
     Dates: start: 20200426, end: 20200429

REACTIONS (3)
  - Cholestasis [Recovering/Resolving]
  - Hepatocellular injury [Recovering/Resolving]
  - Jaundice cholestatic [Recovering/Resolving]

NARRATIVE: CASE EVENT DATE: 20200429
